FAERS Safety Report 5421695-X (Version None)
Quarter: 2007Q3

REPORT INFORMATION
  Report Type: 
  Country: None (occurrence: None)
  Receive Date: 20070821
  Receipt Date: 20070817
  Transmission Date: 20080115
  Serious: Yes (Hospitalization)
  Sender: FDA-Public Use
  Company Number: FR-MERCK-0708FRA00033

PATIENT
  Age: 33 Year
  Sex: Male

DRUGS (6)
  1. PRIMAXIN [Suspect]
     Indication: SERRATIA SEPSIS
     Route: 042
     Dates: start: 20070703
  2. NOREPINEPHRINE HYDROCHLORIDE [Concomitant]
     Indication: SHOCK
     Route: 042
     Dates: start: 20070703
  3. ACETAMINOPHEN [Concomitant]
     Route: 065
  4. GENTAMICIN [Concomitant]
     Indication: SERRATIA SEPSIS
     Route: 042
     Dates: start: 20070713, end: 20070714
  5. FLUDROCORTISONE [Concomitant]
     Route: 061
  6. HYDROCORTISONE HEMISUCCINATE [Concomitant]
     Indication: SHOCK
     Route: 042
     Dates: start: 20070703

REACTIONS (2)
  - BRAIN OEDEMA [None]
  - STATUS EPILEPTICUS [None]
